FAERS Safety Report 5491753-2 (Version None)
Quarter: 2007Q4

REPORT INFORMATION
  Report Type: 
  Country: None (occurrence: None)
  Receive Date: 20071019
  Receipt Date: 20071019
  Transmission Date: 20080405
  Serious: Yes (Hospitalization)
  Sender: FDA-Public Use
  Company Number: None

PATIENT
  Sex: Male
  Weight: 158.1239 kg

DRUGS (16)
  1. REQUIP XL 4 MG GSK [Suspect]
     Indication: PARKINSON'S DISEASE
     Dosage: 6 MG DAILY PO
     Route: 048
     Dates: start: 20070723, end: 20070808
  2. REQUIP XL 4 MG GSK [Suspect]
  3. REQUIP XL 4 MG GSK [Suspect]
  4. REQUIP XL 4 MG GSK [Suspect]
     Indication: PARKINSON'S DISEASE
     Dosage: 12 MG DAILY PO
     Route: 048
     Dates: start: 20070809, end: 20070815
  5. REQUIP XL 4 MG GSK [Suspect]
  6. REQUIP 8 MG GSK [Suspect]
     Indication: PARKINSON'S DISEASE
     Dosage: 16MG DAILY PO
     Route: 048
     Dates: start: 20070816, end: 20071016
  7. SELEGILINE HCL [Concomitant]
  8. AMANTADINE HCL [Concomitant]
  9. SINEMET CR [Concomitant]
  10. STALEVO 100 [Concomitant]
  11. MIRAPEX [Concomitant]
  12. NEXIUM [Concomitant]
  13. ALBUTEROL [Concomitant]
  14. ASPIRIN [Concomitant]
  15. IBUPROFEN [Concomitant]
  16. MIRAPEX [Concomitant]

REACTIONS (1)
  - CHOLELITHIASIS [None]
